FAERS Safety Report 9748271 (Version 1)
Quarter: 2013Q4

REPORT INFORMATION
  Report Type: Report from Study
  Country: US (occurrence: US)
  Receive Date: 20131212
  Receipt Date: 20131212
  Transmission Date: 20140711
  Serious: Yes (Death)
  Sender: FDA-Public Use
  Company Number: US-ROCHE-1319004

PATIENT
  Sex: Male
  Weight: 54.53 kg

DRUGS (8)
  1. AVASTIN [Suspect]
     Indication: SOFT TISSUE CANCER
     Route: 065
     Dates: start: 20111207
  2. AVASTIN [Suspect]
     Indication: METASTASES TO LUNG
     Route: 065
     Dates: start: 20111221
  3. VINORELBINE TARTRATE [Concomitant]
     Route: 065
     Dates: start: 20111130
  4. VINORELBINE TARTRATE [Concomitant]
     Route: 065
     Dates: start: 20111207
  5. VINORELBINE TARTRATE [Concomitant]
     Route: 065
     Dates: start: 20111221
  6. MORPHINE SULFATE [Concomitant]
     Route: 065
  7. ONDANSETRON HYDROCHLORIDE [Concomitant]
     Route: 065
  8. DENOSUMAB [Concomitant]
     Route: 065

REACTIONS (1)
  - Death [Fatal]
